FAERS Safety Report 22137924 (Version 1)
Quarter: 2023Q1

REPORT INFORMATION
  Report Type: Spontaneous
  Country: CN (occurrence: CN)
  Receive Date: 20230325
  Receipt Date: 20230325
  Transmission Date: 20230417
  Serious: Yes (Other)
  Sender: FDA-Public Use
  Company Number: CN-002147023-NVSC2023CN064925

PATIENT
  Age: 35 Year
  Sex: Male
  Weight: 51 kg

DRUGS (1)
  1. SACUBITRIL\VALSARTAN [Suspect]
     Active Substance: SACUBITRIL\VALSARTAN
     Indication: Hypertension
     Dosage: 0.200 G, QD
     Route: 048
     Dates: start: 20230308, end: 20230308

REACTIONS (4)
  - Blood potassium increased [Recovering/Resolving]
  - Cardiac failure [Unknown]
  - Dysarthria [Unknown]
  - Angular cheilitis [Unknown]

NARRATIVE: CASE EVENT DATE: 20230308
